FAERS Safety Report 19483181 (Version 2)
Quarter: 2021Q3

REPORT INFORMATION
  Report Type: Spontaneous
  Country: AT (occurrence: AT)
  Receive Date: 20210701
  Receipt Date: 20210707
  Transmission Date: 20211014
  Serious: Yes (Other)
  Sender: FDA-Public Use
  Company Number: AT-JNJFOC-20210655296

PATIENT
  Age: 69 Year
  Sex: Female

DRUGS (29)
  1. SEROQUEL XR [Suspect]
     Active Substance: QUETIAPINE FUMARATE
     Dates: start: 20210514, end: 20210526
  2. ZOLDEM [Concomitant]
     Active Substance: ZOLPIDEM TARTRATE
     Dates: start: 20210401, end: 20210526
  3. SPRAVATO [Suspect]
     Active Substance: ESKETAMINE
     Route: 045
     Dates: start: 20210420, end: 20210420
  4. SERTRALINE [Suspect]
     Active Substance: SERTRALINE HYDROCHLORIDE
     Dates: start: 20210401, end: 20210401
  5. PREGABALIN. [Suspect]
     Active Substance: PREGABALIN
     Dates: start: 20210419, end: 20210422
  6. SEROQUEL XR [Suspect]
     Active Substance: QUETIAPINE FUMARATE
     Dates: start: 20210423, end: 20210510
  7. SPRAVATO [Suspect]
     Active Substance: ESKETAMINE
     Route: 045
     Dates: start: 20210412, end: 20210412
  8. TRITTICO [Suspect]
     Active Substance: TRAZODONE HYDROCHLORIDE
     Dates: start: 20210401, end: 20210427
  9. ZYPREXA [Suspect]
     Active Substance: OLANZAPINE
     Dates: start: 20210514, end: 20210526
  10. QUILONORM [LITHIUM CARBONATE] [Suspect]
     Active Substance: LITHIUM CARBONATE
     Dates: start: 20210405, end: 20210407
  11. COLECALCIFEROL [Concomitant]
     Active Substance: CHOLECALCIFEROL
     Dates: start: 20210401, end: 20210518
  12. INHIXA [Concomitant]
     Active Substance: ENOXAPARIN SODIUM
     Dates: start: 20210401, end: 20210518
  13. SPRAVATO [Suspect]
     Active Substance: ESKETAMINE
     Route: 045
     Dates: start: 20210427, end: 20210427
  14. TRITTICO [Suspect]
     Active Substance: TRAZODONE HYDROCHLORIDE
     Dates: start: 20210428, end: 20210526
  15. ZYPREXA [Suspect]
     Active Substance: OLANZAPINE
     Dates: start: 20210401, end: 20210513
  16. PREGABALIN. [Suspect]
     Active Substance: PREGABALIN
     Dates: start: 20210423, end: 20210503
  17. SPRAVATO [Suspect]
     Active Substance: ESKETAMINE
     Route: 045
     Dates: start: 20210414, end: 20210414
  18. SPRAVATO [Suspect]
     Active Substance: ESKETAMINE
     Route: 045
     Dates: start: 20210429, end: 20210429
  19. SERTRALINE [Suspect]
     Active Substance: SERTRALINE HYDROCHLORIDE
     Dates: start: 20210413, end: 20210512
  20. QUILONORM [LITHIUM CARBONATE] [Suspect]
     Active Substance: LITHIUM CARBONATE
     Dates: start: 20210412, end: 20210414
  21. QUILONORM [LITHIUM CARBONATE] [Suspect]
     Active Substance: LITHIUM CARBONATE
     Dates: start: 20210415, end: 20210526
  22. SEROQUEL [Suspect]
     Active Substance: QUETIAPINE FUMARATE
     Dates: start: 20210405, end: 20210415
  23. IVABRADINE [Concomitant]
     Active Substance: IVABRADINE
     Dates: start: 20210401, end: 20210526
  24. SPRAVATO [Suspect]
     Active Substance: ESKETAMINE
     Route: 045
     Dates: start: 20210408, end: 20210408
  25. SEROQUEL XR [Suspect]
     Active Substance: QUETIAPINE FUMARATE
     Dates: start: 20210416, end: 20210422
  26. ATORVALAN [Concomitant]
     Active Substance: ATORVASTATIN CALCIUM
     Dates: start: 20210401, end: 20210526
  27. SPRAVATO [Suspect]
     Active Substance: ESKETAMINE
     Indication: MAJOR DEPRESSION
     Route: 045
     Dates: start: 20210423, end: 20210423
  28. SERTRALINE [Suspect]
     Active Substance: SERTRALINE HYDROCHLORIDE
     Dates: start: 20210402, end: 20210412
  29. SERTRALINE [Suspect]
     Active Substance: SERTRALINE HYDROCHLORIDE
     Dates: start: 20210513, end: 20210526

REACTIONS (1)
  - Oedema [Recovering/Resolving]

NARRATIVE: CASE EVENT DATE: 20210422
